FAERS Safety Report 4688139-7 (Version None)
Quarter: 2005Q2

REPORT INFORMATION
  Report Type: 
  Country: None (occurrence: None)
  Receive Date: 20050609
  Receipt Date: 20050602
  Transmission Date: 20051028
  Serious: Yes (Life-Threatening, Other)
  Sender: FDA-Public Use
  Company Number: US-2005-009583

PATIENT
  Age: 76 Year
  Sex: Female
  Weight: 64.4 kg

DRUGS (1)
  1. MAGNEVIST [Suspect]
     Indication: NUCLEAR MAGNETIC RESONANCE IMAGING
     Dosage: 14 ML, 1 DOSE, INTRAVENOUS
     Route: 042
     Dates: start: 20050531, end: 20050531

REACTIONS (5)
  - DYSPHAGIA [None]
  - EYE SWELLING [None]
  - PROCEDURAL COMPLICATION [None]
  - URTICARIA [None]
  - VOMITING [None]
